FAERS Safety Report 12138514 (Version 1)
Quarter: 2016Q1

REPORT INFORMATION
  Report Type: Spontaneous
  Country: US (occurrence: US)
  Receive Date: 20160302
  Receipt Date: 20160302
  Transmission Date: 20160526
  Serious: No
  Sender: FDA-Public Use
  Company Number: US-SA-2016SA000815

PATIENT
  Sex: Female

DRUGS (3)
  1. CERDELGA [Suspect]
     Active Substance: ELIGLUSTAT
     Route: 065
  2. ELELYSO [Concomitant]
     Active Substance: TALIGLUCERASE ALFA
  3. CEREZYME [Concomitant]
     Active Substance: IMIGLUCERASE

REACTIONS (3)
  - Hypoaesthesia oral [Unknown]
  - Pharyngeal disorder [Unknown]
  - Hypersensitivity [Unknown]
